FAERS Safety Report 21472203 (Version 1)
Quarter: 2022Q4

REPORT INFORMATION
  Report Type: Spontaneous
  Country: PT (occurrence: PT)
  Receive Date: 20221018
  Receipt Date: 20221018
  Transmission Date: 20230113
  Serious: Yes (Hospitalization)
  Sender: FDA-Public Use
  Company Number: None

PATIENT
  Age: 60 Year
  Sex: Female

DRUGS (11)
  1. TOPIRAMATE [Suspect]
     Active Substance: TOPIRAMATE
     Indication: Product used for unknown indication
     Dosage: PROGRESSIVE WEEKLY INCREASE, STARTING AT 25MG/DAY UP TO 100MG/DAY IN 4?WEEKS
     Dates: start: 20110418
  2. ANAFRANIL [Concomitant]
     Active Substance: CLOMIPRAMINE HYDROCHLORIDE
  3. ATORVASTATIN [Concomitant]
     Active Substance: ATORVASTATIN
  4. BUDESONIDE\FORMOTEROL FUMARATE [Concomitant]
     Active Substance: BUDESONIDE\FORMOTEROL FUMARATE
     Dosage: POWDER FOR INHALATION
  5. CLONAZEPAM [Concomitant]
     Active Substance: CLONAZEPAM
  6. FUROSEMIDE [Concomitant]
     Active Substance: FUROSEMIDE
  7. MOMETASONE FUROATE [Concomitant]
     Active Substance: MOMETASONE FUROATE
     Dosage: SUSPENSION FOR NASAL SPRAY
  8. OMALIZUMAB [Concomitant]
     Active Substance: OMALIZUMAB
     Dates: start: 20220623
  9. PANTOPRAZOLE [Concomitant]
     Active Substance: PANTOPRAZOLE
  10. SINGULAIR [Concomitant]
     Active Substance: MONTELUKAST SODIUM
  11. TIOTROPIUM BROMIDE [Concomitant]
     Active Substance: TIOTROPIUM BROMIDE
     Dosage: POWDER FOR INHALATION, CAPSULE

REACTIONS (5)
  - Seizure [Recovered/Resolved]
  - Heat stroke [Recovered/Resolved]
  - Thrombocytopenia [Recovered/Resolved]
  - Altered state of consciousness [Recovered/Resolved]
  - Hyperthermia [Recovered/Resolved]

NARRATIVE: CASE EVENT DATE: 20220716
